FAERS Safety Report 5446344-6 (Version None)
Quarter: 2007Q3

REPORT INFORMATION
  Report Type: 
  Country: None (occurrence: None)
  Receive Date: 20070907
  Receipt Date: 20070830
  Transmission Date: 20080115
  Serious: Yes (Other)
  Sender: FDA-Public Use
  Company Number: A0677756A

PATIENT
  Sex: Female

DRUGS (5)
  1. WELLBUTRIN [Suspect]
     Indication: POSTPARTUM DEPRESSION
     Route: 048
     Dates: start: 19940101
  2. EFFEXOR [Concomitant]
  3. AMBIEN [Concomitant]
  4. PAIN MEDICATION [Concomitant]
  5. CYMBALTA [Concomitant]
     Dosage: 20MG UNKNOWN

REACTIONS (8)
  - ANXIETY [None]
  - BACK PAIN [None]
  - CONVULSION [None]
  - FALL [None]
  - HEAD INJURY [None]
  - INSOMNIA [None]
  - LOSS OF CONSCIOUSNESS [None]
  - STRESS [None]
